FAERS Safety Report 18114768 (Version 2)
Quarter: 2020Q3

REPORT INFORMATION
  Report Type: Spontaneous
  Country: US (occurrence: US)
  Receive Date: 20200805
  Receipt Date: 20200910
  Transmission Date: 20201103
  Serious: No
  Sender: FDA-Public Use
  Company Number: US-ASTRAZENECA-2020SE87400

PATIENT
  Sex: Female
  Weight: 93 kg

DRUGS (2)
  1. PREDNISONE. [Concomitant]
     Active Substance: PREDNISONE
     Indication: CHEST DISCOMFORT
  2. PULMICORT FLEXHALER [Suspect]
     Active Substance: BUDESONIDE
     Indication: ASTHMA
     Route: 055
     Dates: start: 202004

REACTIONS (5)
  - Wrong technique in device usage process [Unknown]
  - Exposure during pregnancy [Unknown]
  - Device malfunction [Unknown]
  - Chest discomfort [Unknown]
  - Drug dose omission by device [Unknown]
